FAERS Safety Report 11504284 (Version 1)
Quarter: 2015Q3

REPORT INFORMATION
  Report Type: Spontaneous
  Country: FR (occurrence: FR)
  Receive Date: 20150915
  Receipt Date: 20150915
  Transmission Date: 20151125
  Serious: Yes (Hospitalization)
  Sender: FDA-Public Use
  Company Number: FR-ROCHE-1633322

PATIENT
  Age: 61 Year
  Sex: Male

DRUGS (8)
  1. TENORMIN [Concomitant]
     Active Substance: ATENOLOL
  2. ZYLORIC [Concomitant]
     Active Substance: ALLOPURINOL
  3. VALIUM [Suspect]
     Active Substance: DIAZEPAM
     Indication: ALCOHOL WITHDRAWAL SYNDROME
     Route: 048
     Dates: start: 20150627, end: 20150728
  4. HYTACAND [Concomitant]
     Active Substance: CANDESARTAN CILEXETIL\HYDROCHLOROTHIAZIDE
     Route: 065
     Dates: start: 20150630
  5. SODIUM VALPROATE [Concomitant]
     Active Substance: VALPROATE SODIUM
  6. PYRIDOXINE [Concomitant]
     Active Substance: PYRIDOXINE
  7. DEPAMIDE [Suspect]
     Active Substance: VALPROMIDE
     Indication: AFFECTIVE DISORDER
     Route: 048
     Dates: start: 20150722, end: 20150728
  8. THIAMINE. [Concomitant]
     Active Substance: THIAMINE

REACTIONS (1)
  - Hepatocellular injury [Recovering/Resolving]

NARRATIVE: CASE EVENT DATE: 20150727
